FAERS Safety Report 16026579 (Version 2)
Quarter: 2019Q2

REPORT INFORMATION
  Report Type: Spontaneous
  Country: US (occurrence: US)
  Receive Date: 20190302
  Receipt Date: 20190413
  Transmission Date: 20190711
  Serious: Yes (Hospitalization)
  Sender: FDA-Public Use
  Company Number: US-PRINSTON PHARMACEUTICAL INC.-2019PRN00249

PATIENT
  Age: 64 Year
  Sex: Male
  Weight: 67.57 kg

DRUGS (9)
  1. VALSARTAN. [Suspect]
     Active Substance: VALSARTAN
     Dosage: 40 MG, 2X/DAY
     Route: 048
     Dates: end: 201812
  2. NATURAL GLYCERIN [Concomitant]
  3. VITACAPS [Concomitant]
  4. ISOSORBIDE. [Concomitant]
     Active Substance: ISOSORBIDE
  5. FUROSEMIDE. [Concomitant]
     Active Substance: FUROSEMIDE
  6. VITAMIN D NOS [Concomitant]
     Active Substance: VITAMIN D NOS
  7. BABY ASPIRIN [Concomitant]
     Active Substance: ASPIRIN
  8. BISOPROLOL [Concomitant]
     Active Substance: BISOPROLOL
  9. ^TRAZENDINE^ (PRESUMED TRAZODONE) [Concomitant]

REACTIONS (6)
  - Upper respiratory tract infection [Unknown]
  - Aneurysm [Not Recovered/Not Resolved]
  - Chronic kidney disease [Not Recovered/Not Resolved]
  - Vomiting [Recovered/Resolved]
  - Haematochezia [Recovered/Resolved]
  - Abdominal discomfort [Recovered/Resolved]

NARRATIVE: CASE EVENT DATE: 201812
